FAERS Safety Report 9287079 (Version 2)
Quarter: 2013Q3

REPORT INFORMATION
  Report Type: Spontaneous
  Country: US (occurrence: None)
  Receive Date: 20130508
  Receipt Date: 20130702
  Transmission Date: 20140515
  Serious: Yes (Other)
  Sender: FDA-Public Use
  Company Number: 2013SA045222

PATIENT
  Age: 26 Year
  Sex: Female
  Weight: 61.23 kg

DRUGS (1)
  1. ICY HOT CREAM / UNKNOWN / UNKNOWN [Suspect]
     Indication: MUSCLE DISORDER
     Dates: start: 20130310, end: 20130310

REACTIONS (3)
  - Chemical injury [None]
  - Application site reaction [None]
  - Skin discolouration [None]
